FAERS Safety Report 6510216-6 (Version None)
Quarter: 2009Q4

REPORT INFORMATION
  Report Type: 
  Country: None (occurrence: None)
  Receive Date: 20091222
  Receipt Date: 20091217
  Transmission Date: 20100525
  Serious: Yes (Hospitalization)
  Sender: FDA-Public Use
  Company Number: US-BRISTOL-MYERS SQUIBB COMPANY-14899330

PATIENT
  Age: 50 Year
  Sex: Female
  Weight: 73 kg

DRUGS (10)
  1. ORENCIA [Suspect]
     Indication: RHEUMATOID ARTHRITIS
  2. BONIVA [Concomitant]
  3. CITRACAL [Concomitant]
  4. COMPAZINE [Concomitant]
  5. GABAPENTIN [Concomitant]
     Indication: FIBROMYALGIA
     Dosage: DOSE REDUCED TO 1TABS AT BED TIME
  6. ARAVA [Concomitant]
  7. NEXIUM [Concomitant]
  8. TARKA [Concomitant]
  9. TRAZODONE HCL [Concomitant]
     Indication: FIBROMYALGIA
     Dosage: 3 TABS,DOSE REDUCED TO 50MG  1TABS AT BED TIME
  10. HORMONES [Concomitant]

REACTIONS (1)
  - CEREBRAL THROMBOSIS [None]
